APPROVED DRUG PRODUCT: MEPERIDINE HYDROCHLORIDE PRESERVATIVE FREE
Active Ingredient: MEPERIDINE HYDROCHLORIDE
Strength: 10MG/ML
Dosage Form/Route: INJECTABLE;INJECTION
Application: A040163 | Product #001
Applicant: SPECGX LLC
Approved: May 12, 1997 | RLD: No | RS: No | Type: DISCN